FAERS Safety Report 7945505-1 (Version None)
Quarter: 2011Q4

REPORT INFORMATION
  Report Type: 
  Country: None (occurrence: None)
  Receive Date: 20111129
  Receipt Date: 20111118
  Transmission Date: 20120403
  Serious: Yes (Other)
  Sender: FDA-Public Use
  Company Number: CA-PFIZER INC-2011257270

PATIENT
  Age: 50 Year
  Sex: Female
  Weight: 82.7 kg

DRUGS (3)
  1. SIROLIMUS [Suspect]
     Indication: IMMUNOSUPPRESSION
     Dosage: 2 MG, 1X/DAY
     Route: 048
     Dates: start: 20020829, end: 20101201
  2. AVELOX [Concomitant]
     Indication: BRONCHITIS
     Dosage: UNK
     Dates: start: 20100901, end: 20100901
  3. SIROLIMUS [Suspect]
     Dosage: 2 MG, 1X/DAY
     Route: 048
     Dates: start: 20110321, end: 20110609

REACTIONS (2)
  - ERYTHEMA NODOSUM [None]
  - BRONCHITIS [None]
